FAERS Safety Report 8345339-2 (Version None)
Quarter: 2012Q2

REPORT INFORMATION
  Report Type: 
  Country: None (occurrence: None)
  Receive Date: 20120508
  Receipt Date: 20120426
  Transmission Date: 20120825
  Serious: Yes (Other)
  Sender: FDA-Public Use
  Company Number: BR-ELI_LILLY_AND_COMPANY-BR201204003190

PATIENT
  Sex: Male

DRUGS (4)
  1. HUMULIN R [Suspect]
     Indication: TYPE 1 DIABETES MELLITUS
     Dosage: 4 IU, QD
     Route: 058
     Dates: start: 20110401
  2. ENALAPRIL MALEATE [Concomitant]
     Dosage: UNK, UNKNOWN
     Route: 065
  3. NEOZINE [Concomitant]
     Dosage: UNK, UNKNOWN
     Route: 065
  4. CLONAZEPAM [Concomitant]
     Dosage: UNK, UNKNOWN
     Route: 065

REACTIONS (4)
  - VISUAL IMPAIRMENT [None]
  - FOOT AMPUTATION [None]
  - HAEMODIALYSIS [None]
  - DRUG INEFFECTIVE [None]
